FAERS Safety Report 9354784 (Version 1)
Quarter: 2013Q2

REPORT INFORMATION
  Report Type: Spontaneous
  Country: JP (occurrence: JP)
  Receive Date: 20130619
  Receipt Date: 20130619
  Transmission Date: 20140414
  Serious: Yes (Death, Other)
  Sender: FDA-Public Use
  Company Number: JP-ROCHE-1237492

PATIENT
  Age: 80 Year
  Sex: Male

DRUGS (2)
  1. AVASTIN [Suspect]
     Indication: COLON CANCER RECURRENT
     Route: 041
     Dates: start: 2009, end: 2009
  2. IRINOTECAN [Concomitant]
     Route: 041
     Dates: start: 2009, end: 2009

REACTIONS (2)
  - Deep vein thrombosis [Unknown]
  - Colon cancer recurrent [Fatal]
